FAERS Safety Report 21400756 (Version 1)
Quarter: 2022Q4

REPORT INFORMATION
  Report Type: Spontaneous
  Country: FI (occurrence: FI)
  Receive Date: 20221003
  Receipt Date: 20221003
  Transmission Date: 20230112
  Serious: Yes (Hospitalization)
  Sender: FDA-Public Use
  Company Number: None

PATIENT
  Age: 30 Year
  Sex: Female

DRUGS (1)
  1. SAXENDA [Suspect]
     Active Substance: LIRAGLUTIDE
     Indication: Weight control
     Dosage: UNK
     Route: 058
     Dates: start: 20220810, end: 20220828

REACTIONS (6)
  - Aspartate aminotransferase increased [Recovering/Resolving]
  - Inflammatory marker increased [Recovering/Resolving]
  - Alanine aminotransferase increased [Recovering/Resolving]
  - Gallbladder operation [Recovering/Resolving]
  - Gamma-glutamyltransferase increased [Recovering/Resolving]
  - Abdominal pain upper [Recovering/Resolving]

NARRATIVE: CASE EVENT DATE: 20220827
